FAERS Safety Report 12191339 (Version 1)
Quarter: 2016Q1

REPORT INFORMATION
  Report Type: Report from Study
  Country: NL (occurrence: NL)
  Receive Date: 20160318
  Receipt Date: 20160318
  Transmission Date: 20160526
  Serious: Yes (Hospitalization, Other)
  Sender: FDA-Public Use
  Company Number: NL-AMGEN-NLDSL2016033623

PATIENT
  Age: 75 Year
  Sex: Female

DRUGS (1)
  1. ARANESP [Suspect]
     Active Substance: DARBEPOETIN ALFA
     Indication: NEPHROGENIC ANAEMIA
     Dosage: 150MCG, (500 MCG/ML 0.3ML), Q2WK
     Route: 058

REACTIONS (5)
  - Lung lobectomy [Unknown]
  - Weight decreased [Unknown]
  - Metastases to peritoneum [Unknown]
  - Intentional product misuse [Unknown]
  - Metastases to liver [Unknown]

NARRATIVE: CASE EVENT DATE: 20150714
